FAERS Safety Report 5728119-3 (Version None)
Quarter: 2008Q2

REPORT INFORMATION
  Report Type: 
  Country: None (occurrence: None)
  Receive Date: 20080505
  Receipt Date: 20080429
  Transmission Date: 20081010
  Serious: Yes (Hospitalization)
  Sender: FDA-Public Use
  Company Number: US-MERCK-0804USA06408

PATIENT
  Age: 84 Year
  Sex: Female

DRUGS (5)
  1. JANUVIA [Suspect]
     Indication: DIABETES MELLITUS
     Route: 048
     Dates: start: 20080101
  2. MONOPRIL [Concomitant]
     Route: 065
  3. COUMADIN [Concomitant]
     Route: 065
  4. VITAMINS (UNSPECIFIED) [Concomitant]
     Route: 065
  5. LASIX [Concomitant]
     Route: 065

REACTIONS (4)
  - HYPOGLYCAEMIA [None]
  - OEDEMA PERIPHERAL [None]
  - PNEUMONIA [None]
  - RHINORRHOEA [None]
